FAERS Safety Report 11283404 (Version 1)
Quarter: 2015Q3

REPORT INFORMATION
  Report Type: Spontaneous
  Country: DE (occurrence: DE)
  Receive Date: 20150720
  Receipt Date: 20150720
  Transmission Date: 20151125
  Serious: Yes (Hospitalization)
  Sender: FDA-Public Use
  Company Number: GXKR2015DE003424

PATIENT

DRUGS (14)
  1. KALETRA [Suspect]
     Active Substance: LOPINAVIR\RITONAVIR
     Dosage: 4X200/150MG
     Route: 048
  2. DIAZEPAM. [Concomitant]
     Active Substance: DIAZEPAM
     Dosage: 20 MG, UNK
     Route: 048
     Dates: start: 20120224
  3. DIAZEPAM. [Concomitant]
     Active Substance: DIAZEPAM
     Dosage: 40 MG, UNK
     Route: 048
     Dates: start: 20120225, end: 20120226
  4. SEVREDOL [Concomitant]
     Active Substance: MORPHINE
     Dosage: 80 MG, UNK
     Route: 048
  5. DIAZEPAM. [Concomitant]
     Active Substance: DIAZEPAM
     Dosage: UNK UKN, UNK
     Route: 048
     Dates: start: 20120227, end: 20120228
  6. DIAZEPAM. [Concomitant]
     Active Substance: DIAZEPAM
     Dosage: 10 MG, UNK
     Route: 048
     Dates: start: 20120229
  7. CARBAMAZEPINE. [Suspect]
     Active Substance: CARBAMAZEPINE
     Dosage: 800 MG, UNK
     Route: 048
     Dates: start: 20120225, end: 20120227
  8. VIREAD [Concomitant]
     Active Substance: TENOFOVIR DISOPROXIL FUMARATE
     Dosage: 245 MG, UNK
     Route: 048
  9. SULFAMETHOXAZOLE,TRIMETHOPRIM [Suspect]
     Active Substance: SULFAMETHOXAZOLE\TRIMETHOPRIM
     Indication: PRODUCT USED FOR UNKNOWN INDICATION
     Dosage: 960 MG, UNK
     Route: 048
  10. PANTOZOL [Suspect]
     Active Substance: PANTOPRAZOLE SODIUM
     Dosage: 40 MG, UNK
     Route: 048
     Dates: start: 20120226
  11. CARBAMAZEPINE. [Suspect]
     Active Substance: CARBAMAZEPINE
     Indication: PRODUCT USED FOR UNKNOWN INDICATION
     Dosage: 400 MG, UNK
     Route: 048
     Dates: start: 20120224
  12. MST//MORPHINE SULFATE [Concomitant]
     Dosage: 600 MG, UNK
     Route: 048
  13. COMBIVIR [Concomitant]
     Active Substance: LAMIVUDINE\ZIDOVUDINE
     Route: 048
  14. CARBAMAZEPINE. [Suspect]
     Active Substance: CARBAMAZEPINE
     Dosage: 400 MG, UNK
     Route: 048
     Dates: start: 20120228

REACTIONS (2)
  - Hyponatraemia [Recovering/Resolving]
  - Dizziness [None]

NARRATIVE: CASE EVENT DATE: 20120227
